FAERS Safety Report 16072934 (Version 1)
Quarter: 2019Q1

REPORT INFORMATION
  Report Type: Spontaneous
  Country: CZ (occurrence: CZ)
  Receive Date: 20190314
  Receipt Date: 20190314
  Transmission Date: 20190418
  Serious: Yes (Disabling)
  Sender: FDA-Public Use
  Company Number: CZ-BAUSCH-BL-2019-006767

PATIENT
  Age: 47 Year
  Sex: Female
  Weight: 72 kg

DRUGS (2)
  1. DICLOFENAC DUO PHARMASWISS [Suspect]
     Active Substance: DICLOFENAC SODIUM
     Route: 048
     Dates: start: 2019
  2. DICLOFENAC DUO PHARMASWISS [Suspect]
     Active Substance: DICLOFENAC SODIUM
     Indication: BACK PAIN
     Dosage: 1-0-0
     Route: 048
     Dates: start: 20190124, end: 20190125

REACTIONS (2)
  - Gait inability [Recovering/Resolving]
  - Spinal pain [Recovering/Resolving]

NARRATIVE: CASE EVENT DATE: 20190124
